FAERS Safety Report 25785023 (Version 2)
Quarter: 2025Q4

REPORT INFORMATION
  Report Type: Spontaneous
  Country: EU (occurrence: EU)
  Receive Date: 20250910
  Receipt Date: 20251014
  Transmission Date: 20260118
  Serious: Yes (Other)
  Sender: ABBVIE
  Company Number: None

PATIENT
  Age: 44 Year
  Sex: Female

DRUGS (1)
  1. ATOGEPANT [Suspect]
     Active Substance: ATOGEPANT
     Indication: Migraine
     Dosage: 60 MG TABLETS, 28 TABLETS
     Route: 048
     Dates: start: 20250313, end: 20250901

REACTIONS (4)
  - Amnesia [Unknown]
  - Weight decreased [Unknown]
  - Nausea [Unknown]
  - Androgenetic alopecia [Unknown]

NARRATIVE: CASE EVENT DATE: 20250301
